FAERS Safety Report 5939302-6 (Version None)
Quarter: 2008Q4

REPORT INFORMATION
  Report Type: 
  Country: None (occurrence: None)
  Receive Date: 20081103
  Receipt Date: 20081022
  Transmission Date: 20090506
  Serious: Yes (Other)
  Sender: FDA-Public Use
  Company Number: AU-PFIZER INC-2008089454

PATIENT
  Age: 35 Year
  Sex: Male

DRUGS (3)
  1. ZELDOX (CAPSULES) [Suspect]
  2. ANTI-DIABETICS [Concomitant]
  3. ANTIHYPERTENSIVES [Concomitant]

REACTIONS (3)
  - FALL [None]
  - GAIT DISTURBANCE [None]
  - MANIA [None]
